FAERS Safety Report 9302952 (Version 1)
Quarter: 2013Q2

REPORT INFORMATION
  Report Type: Spontaneous
  Country: BE (occurrence: BE)
  Receive Date: 20130522
  Receipt Date: 20130522
  Transmission Date: 20140414
  Serious: Yes (Hospitalization)
  Sender: FDA-Public Use
  Company Number: BE-AMGEN-BELSP2013035481

PATIENT
  Age: 82 Year
  Sex: Female
  Weight: 54 kg

DRUGS (8)
  1. PROLIA [Suspect]
     Indication: OSTEOPOROSIS
  2. SIMVASTATINE [Concomitant]
     Indication: DYSLIPIDAEMIA
     Dosage: 20 MG, QD
     Dates: start: 2005
  3. CALCIUM [Concomitant]
     Dosage: 1250 MG, QD
     Dates: start: 2006
  4. SINTROM [Concomitant]
     Dosage: 2 MG, QMO
     Route: 048
     Dates: start: 2013
  5. ZALDIAR [Concomitant]
     Dosage: 37.5 MG, UNK
     Dates: start: 2007
  6. NOBITEN                            /01339101/ [Concomitant]
     Indication: HYPERTENSION
     Dosage: 5 MG, UNK
     Route: 048
     Dates: start: 2000
  7. FOSAMAX [Concomitant]
     Dosage: UNK
     Dates: start: 2006
  8. VITAMIN D                          /00107901/ [Concomitant]
     Dosage: UNK
     Dates: start: 2012

REACTIONS (1)
  - Femur fracture [Recovering/Resolving]
